FAERS Safety Report 16696186 (Version 6)
Quarter: 2019Q4

REPORT INFORMATION
  Report Type: Spontaneous
  Country: JP (occurrence: JP)
  Receive Date: 20190813
  Receipt Date: 20191120
  Transmission Date: 20200122
  Serious: No
  Sender: FDA-Public Use
  Company Number: JP-009507513-1908JPN000418J

PATIENT
  Age: 63 Year
  Sex: Male
  Weight: 53 kg

DRUGS (10)
  1. NICORANDIL [Concomitant]
     Active Substance: NICORANDIL
     Indication: ANGINA PECTORIS
     Dosage: 5 MILLIGRAM, BID
     Route: 048
     Dates: start: 20170124
  2. CISPLATIN. [Suspect]
     Active Substance: CISPLATIN
     Indication: NON-SMALL CELL LUNG CANCER
     Dosage: 120 MILLIGRAM, Q3W
     Route: 041
     Dates: start: 20190509, end: 20190509
  3. BENIDIPINE HYDROCHLORIDE [Concomitant]
     Active Substance: BENIDIPINE HYDROCHLORIDE
     Indication: ANGINA PECTORIS
     Dosage: 4 MILLIGRAM, BID
     Route: 048
     Dates: start: 20170124
  4. COCARL [Concomitant]
     Active Substance: ACETAMINOPHEN
     Indication: PAIN
  5. DEXTROMETHORPHAN [Concomitant]
     Active Substance: DEXTROMETHORPHAN
     Indication: COUGH
     Dosage: 30 MILLIGRAM, QID
     Route: 048
     Dates: start: 20190313, end: 20190731
  6. AMLODIPINE [Concomitant]
     Active Substance: AMLODIPINE BESYLATE
     Indication: HYPERTENSION
     Dosage: 2.5 MILLIGRAM, QD
     Route: 048
     Dates: start: 20170124
  7. SEKICODE [Concomitant]
     Indication: COUGH
     Dosage: 5 MILLILITER, TID
     Route: 048
     Dates: start: 20190313, end: 20190717
  8. COCARL [Concomitant]
     Active Substance: ACETAMINOPHEN
     Indication: PYREXIA
     Dosage: 600 MILLIGRAM, QID
     Route: 048
     Dates: start: 20190315, end: 20190904
  9. KEYTRUDA [Suspect]
     Active Substance: PEMBROLIZUMAB
     Indication: NON-SMALL CELL LUNG CANCER
     Dosage: 200 MILLIGRAM, Q3W
     Route: 041
     Dates: start: 20190509, end: 20190627
  10. ALIMTA [Suspect]
     Active Substance: PEMETREXED DISODIUM
     Indication: NON-SMALL CELL LUNG CANCER
     Dosage: 810 MILLIGRAM, Q3W
     Route: 041
     Dates: start: 20190509, end: 20190509

REACTIONS (2)
  - Dermatitis [Not Recovered/Not Resolved]
  - Eosinophil count increased [Not Recovered/Not Resolved]

NARRATIVE: CASE EVENT DATE: 20190512
